FAERS Safety Report 17275990 (Version 3)
Quarter: 2020Q1

REPORT INFORMATION
  Report Type: Spontaneous
  Country: CN (occurrence: CN)
  Receive Date: 20200116
  Receipt Date: 20200217
  Transmission Date: 20200409
  Serious: Yes (Life-Threatening, Hospitalization, Disabling)
  Sender: FDA-Public Use
  Company Number: CN-ROCHE-2524889

PATIENT
  Age: 71 Year
  Sex: Male

DRUGS (2)
  1. SODIUM CHLORIDE. [Concomitant]
     Active Substance: SODIUM CHLORIDE
     Indication: CEREBRAL INFARCTION
     Route: 061
     Dates: start: 20191211, end: 20191211
  2. ACTILYSE [Suspect]
     Active Substance: ALTEPLASE
     Indication: CEREBRAL INFARCTION
     Route: 065
     Dates: start: 20191211, end: 20191211

REACTIONS (3)
  - Brain herniation [Unknown]
  - Haemorrhagic transformation stroke [Unknown]
  - Coma [Unknown]

NARRATIVE: CASE EVENT DATE: 20191211
